FAERS Safety Report 8379545-8 (Version None)
Quarter: 2012Q2

REPORT INFORMATION
  Report Type: 
  Country: None (occurrence: None)
  Receive Date: 20120523
  Receipt Date: 20120514
  Transmission Date: 20120825
  Serious: Yes (Hospitalization)
  Sender: FDA-Public Use
  Company Number: CA-VERTEX PHARMACEUTICALS INC.-AE-2012-007338

PATIENT

DRUGS (2)
  1. MORPHINE [Concomitant]
  2. INCIVEK [Suspect]
     Indication: HEPATITIS C

REACTIONS (4)
  - MEMORY IMPAIRMENT [None]
  - INFLUENZA LIKE ILLNESS [None]
  - APHAGIA [None]
  - INFECTION [None]
